FAERS Safety Report 7962078-8 (Version None)
Quarter: 2011Q4

REPORT INFORMATION
  Report Type: 
  Country: None (occurrence: None)
  Receive Date: 20111207
  Receipt Date: 20111129
  Transmission Date: 20120403
  Serious: Yes (Other)
  Sender: FDA-Public Use
  Company Number: US-JNJFOC-20111200045

PATIENT
  Sex: Female
  Weight: 102.97 kg

DRUGS (4)
  1. ZYRTEC [Suspect]
     Route: 048
  2. DURAGESIC-100 [Suspect]
     Indication: PRODUCT USED FOR UNKNOWN INDICATION
     Route: 062
     Dates: start: 20111001
  3. ZYRTEC [Suspect]
     Indication: MULTIPLE ALLERGIES
     Route: 048
     Dates: start: 20110101
  4. HYDROXYZINE [Suspect]
     Indication: MULTIPLE ALLERGIES
     Route: 065
     Dates: start: 20110101

REACTIONS (3)
  - WEIGHT DECREASED [None]
  - PRODUCT QUALITY ISSUE [None]
  - APPLICATION SITE REACTION [None]
